FAERS Safety Report 7475726-6 (Version None)
Quarter: 2011Q2

REPORT INFORMATION
  Report Type: 
  Country: None (occurrence: None)
  Receive Date: 20110504
  Receipt Date: 20110419
  Transmission Date: 20111010
  Serious: Yes (Hospitalization)
  Sender: FDA-Public Use
  Company Number: DSM-2011-00426

PATIENT
  Age: 65 Year
  Sex: Female
  Weight: 83 kg

DRUGS (4)
  1. OPIPRAMOL (OPIPRAMOL) (OPIPRAMOL) [Concomitant]
  2. OLMESARTAN MEDOXOMIL [Suspect]
     Indication: HYPERTENSION
     Dosage: 20 MG, ORAL
     Route: 048
     Dates: start: 20090101, end: 20100701
  3. METOPROLOL SUCCINATE [Concomitant]
  4. DICLOFENAC SODIUM [Concomitant]

REACTIONS (9)
  - RHINITIS [None]
  - GENITAL HAEMORRHAGE [None]
  - RENAL FAILURE [None]
  - DRUG INTOLERANCE [None]
  - BACK PAIN [None]
  - NAUSEA [None]
  - ARTHRALGIA [None]
  - CARDIAC FAILURE [None]
  - GASTROINTESTINAL DISORDER [None]
